FAERS Safety Report 20799113 (Version 3)
Quarter: 2022Q3

REPORT INFORMATION
  Report Type: Spontaneous
  Country: US (occurrence: US)
  Receive Date: 20220508
  Receipt Date: 20220905
  Transmission Date: 20221027
  Serious: Yes (Other)
  Sender: FDA-Public Use
  Company Number: US-BRISTOL-MYERS SQUIBB COMPANY-2022-030640

PATIENT
  Age: 73 Year
  Sex: Female
  Weight: 66 kg

DRUGS (2)
  1. REVLIMID [Suspect]
     Active Substance: LENALIDOMIDE
     Indication: Product used for unknown indication
     Dosage: TAKE 1 CAPSULE (10MG TOTAL) BY MOUTH DAILY ON ?DAYS 1-21, THEN OFF FOR 7 DAYS (28 DAY CYCLE)
     Route: 048
     Dates: start: 20201223
  2. REVLIMID [Suspect]
     Active Substance: LENALIDOMIDE
     Dosage: TAKE 1 CAPSULE (10 MG TOTAL) BY MOUTH DAILY ON DAYS 1-21, OFF 7 DAYS (28 DAY CYCLE)
     Route: 048

REACTIONS (2)
  - Kidney infection [Not Recovered/Not Resolved]
  - Fatigue [Recovered/Resolved]
